FAERS Safety Report 13805006 (Version 4)
Quarter: 2019Q3

REPORT INFORMATION
  Report Type: Spontaneous
  Country: US (occurrence: US)
  Receive Date: 20170728
  Receipt Date: 20190917
  Transmission Date: 20191004
  Serious: Yes (Other)
  Sender: FDA-Public Use
  Company Number: US-PFIZER INC-2017324041

PATIENT
  Age: 38 Year
  Sex: Female
  Weight: 82 kg

DRUGS (2)
  1. LYRICA [Suspect]
     Active Substance: PREGABALIN
     Indication: PAIN
     Dosage: 450 MG, DAILY (1 CAPSULE IN THE MORNING, 2 CAPSULES AT NIGHT BY MOUTH)
     Route: 048
  2. LYRICA [Suspect]
     Active Substance: PREGABALIN
     Indication: LYME DISEASE

REACTIONS (4)
  - Drug dependence [Unknown]
  - Off label use [Unknown]
  - Product use in unapproved indication [Unknown]
  - Nervousness [Unknown]
